FAERS Safety Report 16050141 (Version 1)
Quarter: 2019Q1

REPORT INFORMATION
  Report Type: Spontaneous
  Country: SI (occurrence: SI)
  Receive Date: 20190308
  Receipt Date: 20190308
  Transmission Date: 20190418
  Serious: Yes (Life-Threatening, Other)
  Sender: FDA-Public Use
  Company Number: SI-TEVA-2019-SI-1020015

PATIENT
  Age: 66 Year
  Sex: Female

DRUGS (6)
  1. EPIRUBICINIJEV KLORID PCH 2 MG/ML RAZTOPINA ZA INJICIRANJE ALI INFUNDI [Suspect]
     Active Substance: EPIRUBICIN HYDROCHLORIDE
     Indication: BREAST CANCER
     Dosage: 2 MG/ML SOLUTION FOR INJECTION OR INFUSION
     Route: 042
     Dates: start: 20181211, end: 20181228
  2. DEXAMETHASONE. [Concomitant]
     Active Substance: DEXAMETHASONE
     Dosage: ACCORDING TO THE SCHEME
  3. EMEND [Concomitant]
     Active Substance: APREPITANT
     Dosage: ACCORDING TO THE SCHEME
  4. AMLESSA [Concomitant]
     Active Substance: AMLODIPINE BESYLATE\PERINDOPRIL ERBUMINE
  5. REGLAN [Concomitant]
     Active Substance: METOCLOPRAMIDE HYDROCHLORIDE
  6. ENDOXAN 1000 MG [Suspect]
     Active Substance: CYCLOPHOSPHAMIDE
     Indication: BREAST CANCER
     Dosage: 10000 MG POWDER FOR CONCENTRATE FOR SOLUTION FOR INFUSION
     Route: 042
     Dates: start: 20181211, end: 20181228

REACTIONS (1)
  - Febrile neutropenia [Not Recovered/Not Resolved]

NARRATIVE: CASE EVENT DATE: 20181228
